FAERS Safety Report 24852039 (Version 1)
Quarter: 2025Q1

REPORT INFORMATION
  Report Type: Spontaneous
  Country: US (occurrence: US)
  Receive Date: 20250116
  Receipt Date: 20250116
  Transmission Date: 20250408
  Serious: Yes (Other)
  Sender: PURDUE
  Company Number: US-PURDUE PHARMA-USA-2025-0314662

PATIENT
  Age: 0 Year
  Sex: Female

DRUGS (3)
  1. MORPHINE SULFATE [Suspect]
     Active Substance: MORPHINE SULFATE
     Indication: Product used for unknown indication
     Route: 065
  2. FENTANYL [Suspect]
     Active Substance: FENTANYL
     Indication: Product used for unknown indication
     Route: 064
  3. FENTANYL [Suspect]
     Active Substance: FENTANYL
     Route: 048

REACTIONS (9)
  - Foetal exposure during pregnancy [Unknown]
  - Unresponsive to stimuli [Unknown]
  - Near death experience [Unknown]
  - Overdose [Unknown]
  - Dyspnoea [Unknown]
  - Irritability [Unknown]
  - High-pitched crying [Unknown]
  - Drug screen positive [Unknown]
  - Drug withdrawal syndrome neonatal [Unknown]

NARRATIVE: CASE EVENT DATE: 20241102
